FAERS Safety Report 10232781 (Version 2)
Quarter: 2014Q3

REPORT INFORMATION
  Report Type: Not Available
  Country: GB (occurrence: GB)
  Receive Date: 20140612
  Receipt Date: 20140714
  Transmission Date: 20150326
  Serious: Yes (Other)
  Sender: FDA-Public Use
  Company Number: GB-BEH-2014042870

PATIENT
  Age: 45 Year
  Sex: Male

DRUGS (2)
  1. HUMAN ALBUMIN [Suspect]
     Active Substance: ALBUMIN (HUMAN)
     Dosage: 5 MG/ML
     Route: 023
  2. HUMAN ALBUMIN [Suspect]
     Active Substance: ALBUMIN (HUMAN)
     Indication: SKIN TEST
     Dosage: 0.5 MG/ML
     Route: 023

REACTIONS (10)
  - Gastrointestinal disorder [Unknown]
  - Injection site erythema [Unknown]
  - Dizziness [Unknown]
  - Tryptase increased [Unknown]
  - Skin disorder [Unknown]
  - Injection site urticaria [Unknown]
  - Incorrect route of drug administration [Unknown]
  - Hypersensitivity [Unknown]
  - Cardiovascular disorder [Unknown]
  - Respiratory disorder [Unknown]
